FAERS Safety Report 10943594 (Version 2)
Quarter: 2015Q2

REPORT INFORMATION
  Report Type: Spontaneous
  Country: US (occurrence: US)
  Receive Date: 20150322
  Receipt Date: 20150526
  Transmission Date: 20150821
  Serious: No
  Sender: FDA-Public Use
  Company Number: US-JNJFOC-20140508886

PATIENT
  Age: 51 Year
  Sex: Female
  Weight: 61.69 kg

DRUGS (9)
  1. HALDOL [Concomitant]
     Active Substance: HALOPERIDOL
     Indication: PSYCHOTIC DISORDER
     Route: 065
     Dates: start: 200910
  2. GABAPENTIN. [Concomitant]
     Active Substance: GABAPENTIN
     Indication: ANXIETY
     Route: 065
     Dates: start: 200910
  3. RISPERDAL CONSTA [Suspect]
     Active Substance: RISPERIDONE
     Indication: SCHIZOPHRENIA
     Route: 030
     Dates: start: 20050728
  4. LAMICTAL [Concomitant]
     Active Substance: LAMOTRIGINE
     Indication: AFFECTIVE DISORDER
     Route: 065
     Dates: start: 200910
  5. RISPERDAL CONSTA [Suspect]
     Active Substance: RISPERIDONE
     Indication: SCHIZOPHRENIA
     Route: 030
  6. GABAPENTIN. [Concomitant]
     Active Substance: GABAPENTIN
     Indication: AFFECTIVE DISORDER
     Route: 065
     Dates: start: 200910
  7. WELLBUTRIN SR [Concomitant]
     Active Substance: BUPROPION HYDROCHLORIDE
     Indication: DEPRESSION
     Route: 065
     Dates: start: 201002
  8. RISPERDAL [Concomitant]
     Active Substance: RISPERIDONE
     Indication: PSYCHOTIC DISORDER
     Route: 065
     Dates: start: 201402
  9. DIAZEPAM. [Concomitant]
     Active Substance: DIAZEPAM
     Indication: ANXIETY
     Route: 065
     Dates: start: 201002

REACTIONS (3)
  - Wrong technique in drug usage process [Unknown]
  - Device occlusion [Unknown]
  - Medical device complication [Unknown]

NARRATIVE: CASE EVENT DATE: 20131115
